FAERS Safety Report 4356641-3 (Version None)
Quarter: 2004Q2

REPORT INFORMATION
  Report Type: 
  Country: None (occurrence: None)
  Receive Date: 20040507
  Receipt Date: 20040419
  Transmission Date: 20050107
  Serious: Yes (Other)
  Sender: FDA-Public Use
  Company Number: JP_040403029

PATIENT
  Age: 18 Year
  Sex: Female

DRUGS (1)
  1. ONCOVIN [Suspect]
     Indication: BURKITT'S LYMPHOMA

REACTIONS (1)
  - MONOPLEGIA [None]
